FAERS Safety Report 21489147 (Version 1)
Quarter: 2022Q4

REPORT INFORMATION
  Report Type: Spontaneous
  Country: SK (occurrence: SK)
  Receive Date: 20221021
  Receipt Date: 20221021
  Transmission Date: 20230113
  Serious: Yes (Hospitalization)
  Sender: FDA-Public Use
  Company Number: SK-BIOGEN-2022BI01160486

PATIENT
  Age: 0 Year
  Sex: Male
  Weight: 0.98 kg

DRUGS (1)
  1. TECFIDERA [Suspect]
     Active Substance: DIMETHYL FUMARATE
     Indication: Product used for unknown indication
     Route: 050

REACTIONS (7)
  - Hyperbilirubinaemia [Unknown]
  - Retinopathy of prematurity [Unknown]
  - Hypotonia [Unknown]
  - Coordination abnormal [Unknown]
  - Infantile haemangioma [Unknown]
  - Premature baby [Recovered/Resolved]
  - Foetal exposure during pregnancy [Recovered/Resolved]

NARRATIVE: CASE EVENT DATE: 20220617
